FAERS Safety Report 7929224-3 (Version None)
Quarter: 2011Q4

REPORT INFORMATION
  Report Type: 
  Country: None (occurrence: None)
  Receive Date: 20111121
  Receipt Date: 20111109
  Transmission Date: 20120403
  Serious: Yes (Hospitalization)
  Sender: FDA-Public Use
  Company Number: US-BIOGENIDEC-2011BI002592

PATIENT
  Age: 69 Year
  Sex: Female

DRUGS (12)
  1. TYSABRI [Suspect]
     Indication: MULTIPLE SCLEROSIS
     Route: 042
     Dates: start: 20080425, end: 20101029
  2. LOPRESSOR [Concomitant]
     Route: 048
  3. FERROUS SULFATE TAB [Concomitant]
     Route: 048
  4. TRIAMCINOLONE ACETONIDE [Concomitant]
  5. ADVICOR [Concomitant]
     Route: 048
  6. HYDROCORTISONE [Concomitant]
     Route: 061
  7. PLAVIX [Concomitant]
     Route: 048
  8. LANTUS [Concomitant]
     Route: 058
  9. NOVOLOG [Concomitant]
     Route: 058
  10. MOMETASONE FUROATE [Concomitant]
     Route: 061
  11. ADVICOR [Concomitant]
     Route: 048
  12. DITROPAN [Concomitant]
     Route: 048

REACTIONS (2)
  - BLOOD GLUCOSE INCREASED [None]
  - OEDEMA PERIPHERAL [None]
